FAERS Safety Report 9836506 (Version 1)
Quarter: 2014Q1

REPORT INFORMATION
  Report Type: Spontaneous
  Country: FR (occurrence: FR)
  Receive Date: 20140123
  Receipt Date: 20140123
  Transmission Date: 20141002
  Serious: Yes (Other)
  Sender: FDA-Public Use
  Company Number: FR-ASTRAZENECA-2014SE04337

PATIENT
  Age: 76 Year
  Sex: Male

DRUGS (7)
  1. CRESTOR [Suspect]
     Indication: CARDIOVASCULAR EVENT PROPHYLAXIS
     Dosage: DAILY
     Route: 048
     Dates: start: 2013, end: 20140114
  2. KARDEGIC [Concomitant]
     Indication: CARDIOVASCULAR EVENT PROPHYLAXIS
     Route: 048
  3. COVERSYL [Concomitant]
     Indication: CARDIOVASCULAR EVENT PROPHYLAXIS
     Route: 048
  4. CARDENSIEL [Concomitant]
     Indication: CARDIOVASCULAR EVENT PROPHYLAXIS
     Route: 048
  5. INEXIUM [Concomitant]
     Route: 048
  6. PIASCLEDINE [Concomitant]
     Route: 048
  7. SERESTA [Concomitant]
     Route: 048

REACTIONS (3)
  - Back pain [Not Recovered/Not Resolved]
  - Musculoskeletal pain [Not Recovered/Not Resolved]
  - Abdominal pain upper [Recovering/Resolving]
